FAERS Safety Report 20818352 (Version 4)
Quarter: 2023Q1

REPORT INFORMATION
  Report Type: Spontaneous
  Country: US (occurrence: US)
  Receive Date: 20220512
  Receipt Date: 20230125
  Transmission Date: 20230417
  Serious: No
  Sender: FDA-Public Use
  Company Number: US-PFIZER INC-202200090002

PATIENT
  Age: 62 Year
  Sex: Female

DRUGS (1)
  1. XELJANZ XR [Suspect]
     Active Substance: TOFACITINIB CITRATE
     Dosage: 11 MG, 1X/DAY

REACTIONS (6)
  - Feeling abnormal [Unknown]
  - Illness [Unknown]
  - Hypoaesthesia [Unknown]
  - Emotional disorder [Unknown]
  - Pain in extremity [Unknown]
  - Peripheral swelling [Unknown]
